FAERS Safety Report 7798540-0 (Version None)
Quarter: 2011Q4

REPORT INFORMATION
  Report Type: 
  Country: None (occurrence: None)
  Receive Date: 20111005
  Receipt Date: 20110926
  Transmission Date: 20120403
  Serious: Yes (Hospitalization)
  Sender: FDA-Public Use
  Company Number: US-ASTRAZENECA-2011SE58062

PATIENT
  Age: 74 Year
  Sex: Female

DRUGS (3)
  1. NEXIUM [Suspect]
     Route: 048
  2. PRILOSEC [Suspect]
     Route: 048
  3. ACTOS [Concomitant]

REACTIONS (6)
  - HEADACHE [None]
  - DRUG DOSE OMISSION [None]
  - DIABETES MELLITUS [None]
  - GASTRIC INFECTION [None]
  - NAUSEA [None]
  - ABDOMINAL PAIN UPPER [None]
